FAERS Safety Report 14625931 (Version 1)
Quarter: 2018Q1

REPORT INFORMATION
  Report Type: Report from Study
  Country: CN (occurrence: CN)
  Receive Date: 20180312
  Receipt Date: 20180312
  Transmission Date: 20180509
  Serious: Yes (Other)
  Sender: FDA-Public Use
  Company Number: CN-ASTELLAS-2018US012259

PATIENT

DRUGS (1)
  1. ERLOTINIB [Suspect]
     Active Substance: ERLOTINIB
     Indication: OESOPHAGEAL CARCINOMA
     Dosage: 150 MG, ONCE DAILY (FROM DAY 1 TO DAY 42)
     Route: 048

REACTIONS (12)
  - Cardiotoxicity [Unknown]
  - Rash [Unknown]
  - Vomiting [Unknown]
  - Pulmonary toxicity [Unknown]
  - Gastrointestinal toxicity [Unknown]
  - Thrombocytopenia [Unknown]
  - Nausea [Unknown]
  - Leukopenia [Unknown]
  - Diarrhoea [Unknown]
  - Oesophagitis [Unknown]
  - Anaemia [Unknown]
  - Fatigue [Unknown]
